FAERS Safety Report 8487782-7 (Version None)
Quarter: 2012Q3

REPORT INFORMATION
  Report Type: 
  Country: None (occurrence: None)
  Receive Date: 20120705
  Receipt Date: 20120702
  Transmission Date: 20120928
  Serious: Yes (Death, Life-Threatening, Hospitalization)
  Sender: FDA-Public Use
  Company Number: DE-PFIZER INC-2012144503

PATIENT
  Age: 62 Year
  Sex: Male

DRUGS (1)
  1. SUTENT [Suspect]
     Indication: GASTROINTESTINAL STROMAL TUMOUR
     Dosage: 50 MG, 1X/DAY
     Route: 048
     Dates: start: 20120424, end: 20120521

REACTIONS (10)
  - HAEMATOCRIT DECREASED [None]
  - CONFUSIONAL STATE [None]
  - HEPATIC FAILURE [None]
  - HEMIPARESIS [None]
  - RED BLOOD CELL COUNT DECREASED [None]
  - AMMONIA INCREASED [None]
  - DISORIENTATION [None]
  - BLOOD CALCIUM DECREASED [None]
  - PYREXIA [None]
  - HAEMOGLOBIN DECREASED [None]
